FAERS Safety Report 19509761 (Version 4)
Quarter: 2022Q1

REPORT INFORMATION
  Report Type: Spontaneous
  Country: JP (occurrence: JP)
  Receive Date: 20210708
  Receipt Date: 20220211
  Transmission Date: 20220423
  Serious: Yes (Hospitalization, Other)
  Sender: FDA-Public Use
  Company Number: JP-UNITED THERAPEUTICS-UNT-2016-007381

PATIENT
  Sex: Female
  Weight: 62.9 kg

DRUGS (53)
  1. REMODULIN [Suspect]
     Active Substance: TREPROSTINIL
     Indication: Pulmonary arterial hypertension
     Dosage: UNK, CONTINUING
     Route: 058
     Dates: start: 20160425, end: 2016
  2. REMODULIN [Suspect]
     Active Substance: TREPROSTINIL
     Dosage: 0.0079 ?G/KG, CONTINUING
     Route: 058
     Dates: start: 2016, end: 2016
  3. REMODULIN [Suspect]
     Active Substance: TREPROSTINIL
     Dosage: 0.0231 ?G/KG, CONTINUING
     Route: 058
     Dates: start: 2016, end: 2016
  4. REMODULIN [Suspect]
     Active Substance: TREPROSTINIL
     Dosage: 0.026 ?G/KG, CONTINUING
     Route: 058
     Dates: start: 2016, end: 2016
  5. REMODULIN [Suspect]
     Active Substance: TREPROSTINIL
     Dosage: 0.033 ?G/KG, CONTINUING
     Route: 058
     Dates: start: 2016, end: 2016
  6. REMODULIN [Suspect]
     Active Substance: TREPROSTINIL
     Dosage: 0.034 ?G/KG, CONTINUING
     Route: 058
     Dates: start: 2016, end: 2016
  7. REMODULIN [Suspect]
     Active Substance: TREPROSTINIL
     Dosage: 0.0335 ?G/KG, CONTINUING
     Route: 058
     Dates: start: 2016
  8. REMODULIN [Suspect]
     Active Substance: TREPROSTINIL
     Dosage: 0.0307 ?G/KG, CONTINUING
     Route: 058
     Dates: end: 2017
  9. REMODULIN [Suspect]
     Active Substance: TREPROSTINIL
     Dosage: 0.0276 ?G/KG, CONTINUING
     Route: 058
     Dates: start: 2017, end: 20170410
  10. REMODULIN [Suspect]
     Active Substance: TREPROSTINIL
     Dosage: 0.025-0.029 ?G/KG, CONTINUING
     Route: 058
     Dates: start: 20170410, end: 2017
  11. REMODULIN [Suspect]
     Active Substance: TREPROSTINIL
     Dosage: 0.0261 ?G/KG, CONTINUING
     Route: 058
     Dates: start: 2017, end: 2017
  12. REMODULIN [Suspect]
     Active Substance: TREPROSTINIL
     Dosage: 0.0247 ?G/KG, CONTINUING
     Route: 058
     Dates: start: 2017, end: 2017
  13. REMODULIN [Suspect]
     Active Substance: TREPROSTINIL
     Dosage: 0.013 ?G/KG, CONTINUING
     Route: 058
     Dates: start: 2017
  14. REMODULIN [Suspect]
     Active Substance: TREPROSTINIL
     Dosage: 0.011 ?G/KG, CONTINUING
     Route: 058
     Dates: end: 20180219
  15. REMODULIN [Suspect]
     Active Substance: TREPROSTINIL
     Dosage: UNK, CONTINUING
     Route: 058
     Dates: start: 20190326, end: 2019
  16. REMODULIN [Suspect]
     Active Substance: TREPROSTINIL
     Dosage: 0.0026 ?G/KG, CONTINUING
     Route: 058
     Dates: start: 2019, end: 2019
  17. REMODULIN [Suspect]
     Active Substance: TREPROSTINIL
     Dosage: 0.0052 ?G/KG, CONTINUING
     Route: 058
     Dates: start: 2019, end: 2019
  18. REMODULIN [Suspect]
     Active Substance: TREPROSTINIL
     Dosage: 0.0078 ?G/KG, CONTINUING
     Route: 058
     Dates: start: 2019
  19. REMODULIN [Suspect]
     Active Substance: TREPROSTINIL
     Dosage: 0.0119 ?G/KG, CONTINUING
     Route: 058
     Dates: end: 2020
  20. REMODULIN [Suspect]
     Active Substance: TREPROSTINIL
     Dosage: 0.012 ?G/KG, CONTINUING (4.5 MCL/HR USING A 200 MG VIAL)
     Route: 058
     Dates: start: 202003, end: 2020
  21. REMODULIN [Suspect]
     Active Substance: TREPROSTINIL
     Dosage: 0.0128 ?G/KG, CONTINUING
     Route: 058
     Dates: start: 2020, end: 2020
  22. REMODULIN [Suspect]
     Active Substance: TREPROSTINIL
     Dosage: 0.0179 ?G/KG, CONTINUING
     Route: 058
     Dates: start: 2020, end: 2020
  23. REMODULIN [Suspect]
     Active Substance: TREPROSTINIL
     Dosage: 0.0205 ?G/KG, CONTINUING
     Route: 058
     Dates: start: 2020
  24. REMODULIN [Suspect]
     Active Substance: TREPROSTINIL
     Dosage: 0.0628 ?G/KG, CONTINUING
     Route: 058
  25. AMBRISENTAN [Concomitant]
     Active Substance: AMBRISENTAN
     Indication: Pulmonary arterial hypertension
     Dosage: UNK
     Route: 048
     Dates: start: 201402, end: 20160725
  26. ADCIRCA [Concomitant]
     Active Substance: TADALAFIL
     Indication: Pulmonary arterial hypertension
     Dosage: UNK
     Route: 048
     Dates: start: 201403, end: 20180920
  27. ADCIRCA [Concomitant]
     Active Substance: TADALAFIL
     Dosage: UNK
     Route: 048
     Dates: start: 20181002
  28. BERAPROST SODIUM [Concomitant]
     Active Substance: BERAPROST SODIUM
     Indication: Pulmonary arterial hypertension
     Dosage: UNK
     Route: 048
     Dates: start: 201402, end: 201605
  29. BERAPROST SODIUM [Concomitant]
     Active Substance: BERAPROST SODIUM
     Dosage: UNK
     Route: 048
     Dates: start: 20161027
  30. HUMALOG [Concomitant]
     Active Substance: INSULIN LISPRO
     Indication: Type 1 diabetes mellitus
     Dosage: UNK
     Route: 058
  31. LANTUS [Concomitant]
     Active Substance: INSULIN GLARGINE
     Indication: Type 1 diabetes mellitus
     Dosage: UNK
     Route: 058
  32. FEBUXOSTAT [Concomitant]
     Active Substance: FEBUXOSTAT
     Indication: Hyperuricaemia
     Dosage: UNK
     Route: 048
  33. AZOSEMIDE [Concomitant]
     Active Substance: AZOSEMIDE
     Indication: Right ventricular failure
     Dosage: UNK
     Route: 048
  34. SPIRONOLACTONE [Concomitant]
     Active Substance: SPIRONOLACTONE
     Indication: Right ventricular failure
     Dosage: UNK
     Route: 048
  35. SAMSCA [Concomitant]
     Active Substance: TOLVAPTAN
     Indication: Right ventricular failure
     Dosage: UNK
     Route: 048
  36. TORSEMIDE [Concomitant]
     Active Substance: TORSEMIDE
     Indication: Right ventricular failure
     Dosage: UNK
     Route: 048
  37. ETIZOLAM [Concomitant]
     Active Substance: ETIZOLAM
     Indication: Product used for unknown indication
     Dosage: UNK
     Route: 048
     Dates: start: 20160828
  38. MOSAPRIDE CITRATE [Concomitant]
     Active Substance: MOSAPRIDE CITRATE
     Indication: Prophylaxis
     Dosage: UNK
     Route: 048
     Dates: start: 20141201
  39. LASIX [Concomitant]
     Active Substance: FUROSEMIDE
     Indication: Product used for unknown indication
     Dosage: UNK
     Route: 048
  40. WARFARIN [Concomitant]
     Active Substance: WARFARIN
     Indication: Pulmonary embolism
     Dosage: UNK
     Route: 048
  41. FERROUS FUMARATE [Concomitant]
     Active Substance: FERROUS FUMARATE
     Indication: Product used for unknown indication
     Dosage: UNK
     Route: 048
     Dates: end: 20160907
  42. FERROUS FUMARATE [Concomitant]
     Active Substance: FERROUS FUMARATE
     Dosage: UNK
     Route: 048
     Dates: start: 20161226, end: 20180618
  43. LEUPROLIDE ACETATE [Concomitant]
     Active Substance: LEUPROLIDE ACETATE
     Indication: Product used for unknown indication
     Dosage: UNK
     Route: 058
     Dates: start: 20160913, end: 20200428
  44. CALONAL [Concomitant]
     Active Substance: ACETAMINOPHEN
     Indication: Prophylaxis
     Dosage: UNK
     Route: 048
     Dates: end: 20170912
  45. BROTIZOLAM [Concomitant]
     Active Substance: BROTIZOLAM
     Indication: Product used for unknown indication
     Dosage: UNK
     Route: 048
     Dates: start: 20161018, end: 20161026
  46. OPSUMIT [Concomitant]
     Active Substance: MACITENTAN
     Indication: Pulmonary arterial hypertension
     Dosage: UNK
     Route: 048
     Dates: start: 20160725
  47. UPTRAVI [Concomitant]
     Active Substance: SELEXIPAG
     Indication: Pulmonary arterial hypertension
     Dosage: UNK
     Route: 048
     Dates: start: 20170512
  48. SLOW K [Concomitant]
     Active Substance: POTASSIUM CHLORIDE
     Indication: Prophylaxis
     Dosage: UNK
     Route: 048
     Dates: start: 20170508
  49. ALLELOCK [Concomitant]
     Active Substance: OLOPATADINE HYDROCHLORIDE
     Indication: Prophylaxis
     Dosage: UNK
     Route: 048
     Dates: start: 20170508
  50. LOXOPROFEN SODIUM [Concomitant]
     Active Substance: LOXOPROFEN SODIUM
     Indication: Prophylaxis
     Dosage: UNK
     Route: 048
     Dates: start: 20170912
  51. Lopemin [Concomitant]
     Indication: Prophylaxis
     Dosage: UNK
     Route: 048
     Dates: end: 20180723
  52. ADEMPAS [Concomitant]
     Active Substance: RIOCIGUAT
     Indication: Pulmonary arterial hypertension
     Dosage: UNK
     Route: 048
     Dates: start: 20180921, end: 20181001
  53. LOPERAMIDE [Concomitant]
     Active Substance: LOPERAMIDE
     Indication: Prophylaxis
     Dosage: UNK
     Route: 048
     Dates: end: 20200114

REACTIONS (31)
  - Vomiting [Recovering/Resolving]
  - Hypokalaemia [Recovered/Resolved]
  - Bradycardia [Not Recovered/Not Resolved]
  - Diarrhoea [Recovering/Resolving]
  - Headache [Not Recovered/Not Resolved]
  - Injection site pain [Recovered/Resolved]
  - Injection site induration [Not Recovered/Not Resolved]
  - Injection site swelling [Recovered/Resolved]
  - Injection site warmth [Recovering/Resolving]
  - Nausea [Recovering/Resolving]
  - Injection site pain [Recovering/Resolving]
  - Mental disorder [Unknown]
  - Injection site erosion [Unknown]
  - Pyrexia [Recovered/Resolved]
  - Injection site discolouration [Unknown]
  - Device issue [Unknown]
  - Injection site infection [Unknown]
  - Injection site erythema [Recovered/Resolved]
  - Malaise [Recovered/Resolved]
  - Injection site erythema [Recovering/Resolving]
  - Injection site infection [Recovered/Resolved]
  - Abdominal pain [Recovering/Resolving]
  - Rash [Recovering/Resolving]
  - Pruritus [Recovering/Resolving]
  - Dyspnoea [Recovering/Resolving]
  - Musculoskeletal stiffness [Not Recovered/Not Resolved]
  - Nasal congestion [Recovered/Resolved]
  - Oedema [Recovered/Resolved]
  - Hot flush [Recovered/Resolved]
  - Cough [Recovering/Resolving]
  - Constipation [Recovering/Resolving]

NARRATIVE: CASE EVENT DATE: 20160101
